FAERS Safety Report 20427223 (Version 1)
Quarter: 2022Q1

REPORT INFORMATION
  Report Type: Report from Study
  Country: US (occurrence: US)
  Receive Date: 20220204
  Receipt Date: 20220204
  Transmission Date: 20220423
  Serious: No
  Sender: FDA-Public Use
  Company Number: US-EXELIXIS-CABO-21043776

PATIENT
  Sex: Female

DRUGS (1)
  1. CABOMETYX [Suspect]
     Active Substance: CABOZANTINIB S-MALATE
     Indication: Renal cancer
     Dosage: 40 MG, QD
     Dates: start: 20210706

REACTIONS (6)
  - Gastrooesophageal reflux disease [Unknown]
  - Stomatitis [Unknown]
  - Fatigue [Unknown]
  - Constipation [Unknown]
  - Nausea [Recovered/Resolved]
  - Decreased appetite [Unknown]
